FAERS Safety Report 5711664-4 (Version None)
Quarter: 2008Q2

REPORT INFORMATION
  Report Type: 
  Country: None (occurrence: None)
  Receive Date: 20080416
  Receipt Date: 20080328
  Transmission Date: 20081010
  Serious: Yes (Death, Hospitalization, Other)
  Sender: FDA-Public Use
  Company Number: 028-C5013-07101558

PATIENT
  Age: 47 Year
  Sex: Male

DRUGS (10)
  1. CC-5013 (LENALIDOMIDE) (CAPSULES) [Suspect]
     Indication: MULTIPLE MYELOMA
     Dosage: 25 MG, X 21 DAYS, ORAL
     Route: 048
     Dates: start: 20071011, end: 20071031
  2. DEXAMETHASONE TAB [Suspect]
     Indication: MULTIPLE MYELOMA
     Dosage: 20 MG, DAILY DAYS 1-4, 9-12, 17-20, ORAL
     Route: 048
     Dates: start: 20071026, end: 20071029
  3. PERCOCET [Concomitant]
  4. SULFAMETHOXAZOLE [Concomitant]
  5. MS CONTIN (MORPHINE SULFATE) (30 MILLIGRAM) [Concomitant]
  6. ASPIRIN [Concomitant]
  7. RBC TRANSFUSION (BLOOD CELLS, PACKED HUMAN) [Concomitant]
  8. MEROPENEM (MEROPENEM) [Concomitant]
  9. NEUPOGEN [Concomitant]
  10. OXYGEN (OXYGEN) [Concomitant]

REACTIONS (7)
  - BACK PAIN [None]
  - CARDIO-RESPIRATORY ARREST [None]
  - PNEUMOCYSTIS JIROVECI PNEUMONIA [None]
  - PNEUMONIA [None]
  - PYREXIA [None]
  - THROMBOCYTOPENIA [None]
  - UNRESPONSIVE TO STIMULI [None]
